FAERS Safety Report 10953087 (Version 1)
Quarter: 2015Q1

REPORT INFORMATION
  Report Type: Spontaneous
  Country: US (occurrence: None)
  Receive Date: 20150323
  Receipt Date: 20150323
  Transmission Date: 20150721
  Serious: Yes (Disabling, Other)
  Sender: FDA-Public Use
  Company Number: DEP_02581_2015

PATIENT
  Sex: Female
  Weight: 90.72 kg

DRUGS (13)
  1. ZANAFLEX [Concomitant]
     Active Substance: TIZANIDINE HYDROCHLORIDE
  2. CYMBALTA [Concomitant]
     Active Substance: DULOXETINE HYDROCHLORIDE
  3. COREG [Concomitant]
     Active Substance: CARVEDILOL
  4. ZESTRIL [Concomitant]
     Active Substance: LISINOPRIL
  5. KLONOPIN [Concomitant]
     Active Substance: CLONAZEPAM
  6. OXYCODONE [Concomitant]
     Active Substance: OXYCODONE
  7. GRALISE [Suspect]
     Active Substance: GABAPENTIN
     Indication: OFF LABEL USE
     Route: 048
     Dates: start: 2014, end: 2014
  8. OMEPRAZOLE. [Concomitant]
     Active Substance: OMEPRAZOLE
  9. CARDIZEM [Concomitant]
     Active Substance: DILTIAZEM HYDROCHLORIDE
  10. GRALISE [Suspect]
     Active Substance: GABAPENTIN
     Indication: OCCIPITAL NEURALGIA
     Route: 048
     Dates: start: 2014, end: 2014
  11. GRALISE [Suspect]
     Active Substance: GABAPENTIN
     Indication: RADICULOPATHY
     Route: 048
     Dates: start: 2014, end: 2014
  12. IMDUR [Concomitant]
     Active Substance: ISOSORBIDE MONONITRATE
  13. ALLEGRA [Concomitant]
     Active Substance: FEXOFENADINE HYDROCHLORIDE

REACTIONS (13)
  - Antiphospholipid syndrome [None]
  - Blood triglycerides abnormal [None]
  - Weight increased [None]
  - Glucose tolerance impaired [None]
  - Fatigue [None]
  - Visual impairment [None]
  - Depression [None]
  - Blood cholesterol increased [None]
  - Hyperhidrosis [None]
  - Cerebrovascular accident [None]
  - Asthenia [None]
  - Hypothyroidism [None]
  - Thrombosis [None]

NARRATIVE: CASE EVENT DATE: 2014
